FAERS Safety Report 6824254-7 (Version None)
Quarter: 2010Q3

REPORT INFORMATION
  Report Type: 
  Country: None (occurrence: None)
  Receive Date: 20100708
  Receipt Date: 20061110
  Transmission Date: 20110219
  Serious: No
  Sender: FDA-Public Use
  Company Number: US-PFIZER INC-2006125598

PATIENT
  Sex: Female
  Weight: 45.36 kg

DRUGS (12)
  1. CHANTIX [Suspect]
     Indication: EX-TOBACCO USER
     Dates: start: 20060930
  2. EVISTA [Concomitant]
  3. ORPHENADRINE CITRATE [Concomitant]
  4. NORVASC [Concomitant]
  5. NAPROSYN [Concomitant]
  6. IBANDRONATE SODIUM [Concomitant]
  7. PROZAC [Concomitant]
  8. VICODIN [Concomitant]
  9. OMEPRAZOLE [Concomitant]
  10. CRESTOR [Concomitant]
  11. ACETYLSALICYLIC ACID [Concomitant]
  12. ZELNORM [Concomitant]

REACTIONS (5)
  - ASTHENIA [None]
  - CHANGE OF BOWEL HABIT [None]
  - NAUSEA [None]
  - PAIN [None]
  - SOMNOLENCE [None]
